FAERS Safety Report 24255097 (Version 1)
Quarter: 2024Q3

REPORT INFORMATION
  Report Type: Spontaneous
  Country: US (occurrence: US)
  Receive Date: 20240827
  Receipt Date: 20240827
  Transmission Date: 20241016
  Serious: No
  Sender: TOLMAR
  Company Number: US-TOLMAR, INC.-24US051190

PATIENT

DRUGS (1)
  1. ELIGARD [Suspect]
     Active Substance: LEUPROLIDE ACETATE
     Indication: Product used for unknown indication
     Dosage: 22.5 MILLIGRAM
     Dates: start: 20240719

REACTIONS (1)
  - Intercepted product selection error [Unknown]

NARRATIVE: CASE EVENT DATE: 20240719
